FAERS Safety Report 19865317 (Version 1)
Quarter: 2021Q3

REPORT INFORMATION
  Report Type: Spontaneous
  Country: US (occurrence: US)
  Receive Date: 20210921
  Receipt Date: 20210921
  Transmission Date: 20211014
  Serious: Yes (Hospitalization)
  Sender: FDA-Public Use
  Company Number: None

PATIENT
  Age: 35 Month
  Sex: Male

DRUGS (1)
  1. SILDENAFIL 10MG/ML SUSP (112ML) [Suspect]
     Active Substance: SILDENAFIL
     Indication: CONGENITAL PULMONARY ARTERY ANOMALY
     Dosage: ?          OTHER FREQUENCY:SEE B.6(PAGE2);?
     Route: 048
     Dates: start: 20201015

REACTIONS (1)
  - Haemoptysis [None]

NARRATIVE: CASE EVENT DATE: 20210830
